FAERS Safety Report 6674561-6 (Version None)
Quarter: 2010Q2

REPORT INFORMATION
  Report Type: 
  Country: None (occurrence: None)
  Receive Date: 20100409
  Receipt Date: 20100329
  Transmission Date: 20101027
  Serious: Yes (Disabling, Other)
  Sender: FDA-Public Use
  Company Number: PT-CEPHALON-2010001848

PATIENT
  Sex: Female
  Weight: 78 kg

DRUGS (15)
  1. GABITRIL [Suspect]
     Indication: PARAESTHESIA
     Dates: start: 20091222
  2. GABITRIL [Suspect]
     Dates: end: 20100116
  3. ETOFENAMATE [Concomitant]
     Indication: PARAESTHESIA
     Route: 048
     Dates: start: 20091222
  4. THIAMINE HYDROCHLORIDE [Concomitant]
     Indication: PARAESTHESIA
     Route: 048
     Dates: start: 20091222
  5. PYRIDOXINE HYDROCHLORIDE [Concomitant]
     Indication: PARAESTHESIA
     Route: 048
     Dates: start: 20091222
  6. CYANOCOBALAMIN [Concomitant]
     Indication: PARAESTHESIA
     Dates: start: 20091222
  7. THIOCOLCHICOSIDE [Concomitant]
     Route: 048
  8. DIAZEPAM [Concomitant]
     Route: 048
  9. PARACETAMOL [Concomitant]
     Route: 048
  10. ALENDRONATE SODIUM TRIHYDRATE [Concomitant]
     Route: 048
  11. CHOLECALCIFEROL [Concomitant]
     Route: 048
  12. CAPTOPRIL [Concomitant]
     Route: 048
  13. HYDROCHLOROTHIAZIDE [Concomitant]
     Route: 048
  14. RABEPRAZOLE SODIUM [Concomitant]
     Route: 048
  15. ACETYLSALICYLIC ACID [Concomitant]
     Route: 048

REACTIONS (9)
  - DIZZINESS [None]
  - ERYTHEMA [None]
  - FACE OEDEMA [None]
  - FEELING HOT [None]
  - HYPOAESTHESIA [None]
  - MEMORY IMPAIRMENT [None]
  - OCULAR DISCOMFORT [None]
  - PRURITUS [None]
  - SWELLING FACE [None]
